FAERS Safety Report 7599257-8 (Version None)
Quarter: 2011Q3

REPORT INFORMATION
  Report Type: 
  Country: None (occurrence: None)
  Receive Date: 20110711
  Receipt Date: 20101217
  Transmission Date: 20111222
  Serious: Yes (Hospitalization, Other)
  Sender: FDA-Public Use
  Company Number: US-BAYER-200940680NA

PATIENT
  Age: 81 Year
  Sex: Female
  Weight: 52.608 kg

DRUGS (13)
  1. DILAUDID [Concomitant]
     Indication: PRODUCT USED FOR UNKNOWN INDICATION
     Dosage: 1 MG, UNK
     Route: 042
     Dates: start: 20040106
  2. NORCURON [Concomitant]
     Indication: PRODUCT USED FOR UNKNOWN INDICATION
     Dosage: 14
     Route: 042
     Dates: start: 20040112, end: 20040112
  3. ZINACEF [Concomitant]
     Indication: PRODUCT USED FOR UNKNOWN INDICATION
     Dosage: 1.5 G, UNK
     Route: 042
     Dates: start: 20040112, end: 20040112
  4. VERSED [Concomitant]
     Indication: PRODUCT USED FOR UNKNOWN INDICATION
     Dosage: 1 MG, UNK
     Route: 042
     Dates: start: 20040106
  5. VALIUM [Concomitant]
     Indication: PRODUCT USED FOR UNKNOWN INDICATION
     Dosage: 10 MG, UNK
     Route: 042
     Dates: start: 20040112, end: 20040112
  6. PROTAMINE SULFATE [Concomitant]
     Indication: PRODUCT USED FOR UNKNOWN INDICATION
     Dosage: 200 MG, UNK
     Route: 042
     Dates: start: 20040112, end: 20040112
  7. INTEGRILIN [Concomitant]
     Indication: PRODUCT USED FOR UNKNOWN INDICATION
     Dosage: 75MG/100ML
     Route: 042
     Dates: start: 20040106
  8. SUFENTA PRESERVATIVE FREE [Concomitant]
     Indication: PRODUCT USED FOR UNKNOWN INDICATION
     Dosage: 3 ML, UNK
     Route: 042
     Dates: start: 20040112, end: 20040112
  9. PROPOFOL [Concomitant]
     Indication: PRODUCT USED FOR UNKNOWN INDICATION
     Dosage: 15
     Route: 042
     Dates: start: 20040112, end: 20040112
  10. HEPARIN [Concomitant]
     Indication: PRODUCT USED FOR UNKNOWN INDICATION
     Dosage: 550 MG, UNK
     Route: 042
     Dates: start: 20040112, end: 20040112
  11. MANNITOL [Concomitant]
     Indication: PRODUCT USED FOR UNKNOWN INDICATION
     Dosage: 12.5 G, UNK
     Route: 042
     Dates: start: 20040112, end: 20040112
  12. TRASYLOL [Suspect]
     Indication: CORONARY ARTERY BYPASS
     Dosage: 100 ML, UNK
     Route: 042
     Dates: start: 20040112, end: 20040112
  13. VERSED [Concomitant]
     Dosage: 5 MG, UNK
     Route: 042
     Dates: start: 20040112, end: 20040112

REACTIONS (12)
  - ANXIETY [None]
  - RENAL INJURY [None]
  - EMOTIONAL DISTRESS [None]
  - UNEVALUABLE EVENT [None]
  - PSYCHIATRIC SYMPTOM [None]
  - RENAL IMPAIRMENT [None]
  - ANHEDONIA [None]
  - RENAL FAILURE [None]
  - STRESS [None]
  - FEAR [None]
  - PAIN [None]
  - INJURY [None]
